FAERS Safety Report 11025791 (Version 1)
Quarter: 2015Q2

REPORT INFORMATION
  Report Type: Spontaneous
  Country: CZ (occurrence: CZ)
  Receive Date: 20150414
  Receipt Date: 20150414
  Transmission Date: 20150821
  Serious: Yes (Life-Threatening, Hospitalization, Other)
  Sender: FDA-Public Use
  Company Number: CZ-ROCHE-1563297

PATIENT
  Age: 63 Year
  Sex: Female
  Weight: 60 kg

DRUGS (6)
  1. TRASTUZUMAB [Concomitant]
     Active Substance: TRASTUZUMAB
     Indication: INVASIVE DUCTAL BREAST CARCINOMA
     Route: 065
     Dates: start: 20150318, end: 20150318
  2. XGEVA [Concomitant]
     Active Substance: DENOSUMAB
     Indication: INVASIVE DUCTAL BREAST CARCINOMA
     Route: 065
     Dates: end: 20150319
  3. DOCETAXEL. [Concomitant]
     Active Substance: DOCETAXEL
     Indication: INVASIVE DUCTAL BREAST CARCINOMA
     Route: 065
     Dates: start: 20150318, end: 20150318
  4. PERJETA [Suspect]
     Active Substance: PERTUZUMAB
     Indication: INVASIVE DUCTAL BREAST CARCINOMA
     Route: 041
     Dates: start: 20150318, end: 20150318
  5. CALCICHEW [Concomitant]
     Active Substance: CALCIUM CARBONATE
     Indication: INVASIVE DUCTAL BREAST CARCINOMA
     Route: 065
  6. ANASTROZOLUM [Concomitant]
     Indication: INVASIVE DUCTAL BREAST CARCINOMA
     Route: 065
     Dates: end: 201502

REACTIONS (4)
  - Dehydration [Unknown]
  - Diarrhoea [Unknown]
  - Sepsis [Unknown]
  - Arrhythmia supraventricular [Unknown]

NARRATIVE: CASE EVENT DATE: 20150321
